FAERS Safety Report 17660073 (Version 1)
Quarter: 2020Q2

REPORT INFORMATION
  Report Type: Spontaneous
  Country: CH (occurrence: CH)
  Receive Date: 20200413
  Receipt Date: 20200413
  Transmission Date: 20200713
  Serious: Yes (Other)
  Sender: FDA-Public Use
  Company Number: CH-PFIZER INC-2020112193

PATIENT
  Age: 63 Year
  Sex: Male
  Weight: 88.5 kg

DRUGS (17)
  1. RAMIPRIL. [Concomitant]
     Active Substance: RAMIPRIL
     Dosage: 1 DF, 1X/DAY, 1-0-0
  2. BOSULIF [Suspect]
     Active Substance: BOSUTINIB MONOHYDRATE
     Indication: CHRONIC MYELOID LEUKAEMIA
     Dosage: 1 DF, DAILY
     Dates: start: 20200124, end: 20200217
  3. CRESTOR [Concomitant]
     Active Substance: ROSUVASTATIN CALCIUM
     Dosage: 1 DF, 1X/DAY, 1-0-0
  4. ALLOPURINOL. [Concomitant]
     Active Substance: ALLOPURINOL
     Dosage: 0.5 DF, 1X/DAY, 0.5 -0-0
     Dates: start: 20200124, end: 20200211
  5. PANTOPRAZOLE [Concomitant]
     Active Substance: PANTOPRAZOLE
     Indication: PROPHYLAXIS
     Dosage: 1 DF, 1X/DAY, 1-0-0
     Dates: start: 20200109
  6. ALLOPURINOL. [Concomitant]
     Active Substance: ALLOPURINOL
     Dosage: 1 DF, 1X/DAY, 1-0-0
     Dates: start: 20200109
  7. ASPIRIN CARDIO [Concomitant]
     Active Substance: ASPIRIN
     Dosage: 1 DF, 1X/DAY, 1-0-0
     Dates: start: 20200119
  8. LITALIR [Concomitant]
     Active Substance: HYDROXYUREA
     Dosage: 1 DF, 3X/DAY, 1-1-1
     Dates: start: 20200109
  9. LITALIR [Concomitant]
     Active Substance: HYDROXYUREA
     Dosage: 1 DF, 4X/DAY, 1-1-1-1
     Dates: start: 20200110
  10. LITALIR [Concomitant]
     Active Substance: HYDROXYUREA
     Dosage: 1 DF, 2X/DAY, 1-0-1
     Dates: start: 20200125
  11. LITALIR [Concomitant]
     Active Substance: HYDROXYUREA
     Dosage: 1 DF, 1X/DAY, 1-0-0
     Dates: start: 20200127, end: 20200129
  12. UROCIT [Concomitant]
     Dosage: 1 DF, 3X/DAY, 0-1-1-1,TO BE TAKEN WITHOUT CHEWING THEM DURING OR AFTER THE MEAL WITH A LOT OF LIQUID
     Dates: start: 20200109
  13. UROCIT [Concomitant]
     Dosage: 1 DF, 3X/DAY, 1-1-1, TO BE TAKEN WITHOUT CHEWING THEM DURING OR AFTER THE MEAL WITH A LOT OF LIQUID
     Dates: start: 20200110
  14. UROCIT [Concomitant]
     Dosage: 1 DF, 1X/DAY, 1-0-0, WITHOUT CHEWING THEM DURING OR AFTER THE MEAL WITH A LOT OF LIQUID
     Dates: start: 20200125, end: 20200127
  15. LITALIR [Concomitant]
     Active Substance: HYDROXYUREA
     Dosage: 1 DF, 3X/DAY, 1-1-1
     Dates: start: 20200123
  16. UROCIT [Concomitant]
     Dosage: 1 DF, 2X/DAY, 1-0-1, WITHOUT CHEWING THEM DURING OR AFTER THE MEAL WITH A LOT OF LIQUID
     Dates: start: 20200123
  17. CLEXANE [Concomitant]
     Active Substance: ENOXAPARIN SODIUM
     Dosage: 1 DF, 1X/DAY, 0-0-1
     Dates: start: 20200108, end: 20200118

REACTIONS (21)
  - Lip oedema [Recovered/Resolved]
  - Pruritus [Recovered/Resolved]
  - Alanine aminotransferase increased [Recovered/Resolved]
  - Eczema [Recovered/Resolved]
  - Oedema peripheral [Recovered/Resolved]
  - Aspartate aminotransferase increased [Recovered/Resolved]
  - Gamma-glutamyltransferase increased [Recovered/Resolved]
  - Blood uric acid increased [Recovered/Resolved]
  - Blood bilirubin increased [Recovered/Resolved]
  - Platelet count increased [Recovered/Resolved]
  - Red blood cell count decreased [Recovered/Resolved]
  - C-reactive protein increased [Recovered/Resolved]
  - Rash [Recovered/Resolved]
  - Erythema [Recovered/Resolved]
  - Blood alkaline phosphatase increased [Recovered/Resolved]
  - White blood cell count increased [Recovered/Resolved]
  - Blood lactate dehydrogenase increased [Recovered/Resolved]
  - Haemoglobin decreased [Recovered/Resolved]
  - Granulocyte count increased [Recovered/Resolved]
  - Haematocrit decreased [Recovered/Resolved]
  - Blood creatinine increased [Recovered/Resolved]

NARRATIVE: CASE EVENT DATE: 20200130
